FAERS Safety Report 5060743-6 (Version None)
Quarter: 2006Q3

REPORT INFORMATION
  Report Type: 
  Country: None (occurrence: None)
  Receive Date: 20060721
  Receipt Date: 20060721
  Transmission Date: 20061208
  Serious: Yes (Other)
  Sender: FDA-Public Use
  Company Number: None

PATIENT
  Age: 23 Year
  Sex: Female
  Weight: 69.8539 kg

DRUGS (1)
  1. MONISTAT 3 [Suspect]
     Indication: FUNGAL INFECTION
     Dosage: 3 DAY   3 DAYS  VAG
     Route: 067
     Dates: start: 20060717, end: 20060719

REACTIONS (3)
  - BURNING SENSATION [None]
  - PAIN [None]
  - PRURITUS [None]
